FAERS Safety Report 15660691 (Version 7)
Quarter: 2019Q1

REPORT INFORMATION
  Report Type: Report from Study
  Country: DE (occurrence: DE)
  Receive Date: 20181127
  Receipt Date: 20190213
  Transmission Date: 20190417
  Serious: Yes (Death, Life-Threatening, Hospitalization, Other)
  Sender: FDA-Public Use
  Company Number: DE-PFIZER INC-2000023148DE

PATIENT
  Age: 60 Year
  Sex: Female
  Weight: 40 kg

DRUGS (80)
  1. BENZYLPENICILLIN SODIUM [Suspect]
     Active Substance: PENICILLIN G SODIUM
     Dosage: 10 MILLION IU, 1X/DAY
     Route: 042
     Dates: start: 19980821, end: 19980826
  2. DIGIMERCK [Suspect]
     Active Substance: DIGITOXIN
     Indication: CARDIAC FAILURE
     Dosage: 1 DF, 1X/DAY, DIGIMERCK MINOR
     Route: 048
     Dates: start: 19980812
  3. PASPERTIN [METOCLOPRAMIDE HYDROCHLORIDE] [Suspect]
     Active Substance: METOCLOPRAMIDE HYDROCHLORIDE
     Indication: NAUSEA
     Dosage: 1 DF, 1X/DAY, INJECTION, DAILY DOSE = 1 AMPULE
     Route: 042
     Dates: start: 19980808, end: 19980826
  4. POTASSIUM CHLORIDE. [Concomitant]
     Active Substance: POTASSIUM CHLORIDE
     Dosage: 2 DF, QD
     Route: 048
     Dates: start: 19980814, end: 19980814
  5. KALIUMKLORID [Concomitant]
     Indication: HYPOKALAEMIA
     Dosage: 3 DF, 1X/DAY
     Route: 048
     Dates: start: 19980818, end: 19980820
  6. KALINOR-BRAUSETABLETTEN [Concomitant]
     Active Substance: POTASSIUM CARBONATE\POTASSIUM CITRATE
     Indication: BLOOD POTASSIUM DECREASED
     Dosage: 1 DF, 1X/DAY
     Route: 048
     Dates: start: 19980821, end: 19980821
  7. KALINOR-BRAUSETABLETTEN [Concomitant]
     Active Substance: POTASSIUM CARBONATE\POTASSIUM CITRATE
     Dosage: 1 DF, 1X/DAY
     Route: 048
     Dates: start: 19980824, end: 19980825
  8. KALINOR [POTASSIUM BICARBONATE;POTASSIUM CITRATE] [Concomitant]
     Indication: HYPOKALAEMIA
     Dosage: 1 DF, 1 TOTAL
     Route: 048
     Dates: start: 19980821, end: 19980821
  9. FRAGMIN P FORTE [Suspect]
     Active Substance: DALTEPARIN SODIUM
     Dosage: 1 DF, 1X/DAY
     Route: 058
  10. LOPIRIN COR [Suspect]
     Active Substance: CAPTOPRIL
     Indication: HYPERTENSION
     Dosage: 2 DF, 1X/DAY
     Route: 048
     Dates: end: 19980806
  11. LASIX [Suspect]
     Active Substance: FUROSEMIDE
     Indication: CARDIAC FAILURE
     Dosage: 1 DF, 1X/DAY
     Route: 048
     Dates: end: 19980406
  12. DILATREND [Suspect]
     Active Substance: CARVEDILOL
     Dosage: 6.25 MG, UNK
     Route: 048
     Dates: start: 19980811
  13. EUGLUCON [Suspect]
     Active Substance: GLYBURIDE
     Dosage: 1 DF, 1X/DAY
     Dates: end: 19980818
  14. PRES [Suspect]
     Active Substance: ENALAPRIL MALEATE
     Indication: HYPERTONIA
     Dosage: 5 MG, 1X/DAY
     Route: 048
     Dates: start: 19980811, end: 19980817
  15. XANEF [ENALAPRIL MALEATE] [Suspect]
     Active Substance: ENALAPRIL MALEATE
     Dosage: 10 MG, 1X/DAY
     Route: 048
     Dates: start: 19980811, end: 19980817
  16. XANEF [ENALAPRIL MALEATE] [Suspect]
     Active Substance: ENALAPRIL MALEATE
     Dosage: 5 MG, 1X/DAY
     Route: 048
     Dates: start: 19980811, end: 19980817
  17. ISOKET [Suspect]
     Active Substance: ISOSORBIDE DINITRATE
     Indication: HYPERTENSION
     Dosage: 60 MG, 1X/DAY, ISOKET RETARD 60
     Route: 048
     Dates: start: 19980818
  18. PASPERTIN [METOCLOPRAMIDE HYDROCHLORIDE] [Suspect]
     Active Substance: METOCLOPRAMIDE HYDROCHLORIDE
     Dosage: 60 GTT, 1X/DAY
     Route: 048
     Dates: start: 19980820, end: 19980820
  19. GLIBENCLAMIDE [Suspect]
     Active Substance: GLYBURIDE
     Indication: DIABETES MELLITUS
     Dosage: 1 DF, 1X/DAY
     Route: 048
     Dates: start: 19980820, end: 19980821
  20. METAMIZOLE SODIUM [Concomitant]
     Active Substance: METAMIZOLE SODIUM
  21. POTASSIUM CHLORIDE. [Concomitant]
     Active Substance: POTASSIUM CHLORIDE
     Dosage: 3 DF, QD
     Route: 048
     Dates: start: 19980818, end: 19980820
  22. TAVEGIL [CLEMASTINE] [Concomitant]
     Indication: ERYTHEMA
     Dosage: 1 DF, 1X/DAY, 1 AMPULE
     Route: 042
     Dates: start: 19980826, end: 19980826
  23. KALIUMKLORID [Concomitant]
     Dosage: 6 MMOL, 1 HOUR
     Route: 042
     Dates: start: 19980828, end: 19980828
  24. STEROFUNDIN [Concomitant]
     Active Substance: CALCIUM CHLORIDE\MAGNESIUM CHLORIDE\POTASSIUM CHLORIDE\SODIUM ACETATE\SODIUM CHLORIDE
     Indication: FLUID REPLACEMENT
  25. VANCOMYCIN [Suspect]
     Active Substance: VANCOMYCIN
     Indication: PNEUMONIA
     Dosage: 500 MG, 1X/DAY
     Route: 042
     Dates: start: 19980821, end: 19980826
  26. PRES [Suspect]
     Active Substance: ENALAPRIL MALEATE
     Indication: HYPERTENSION
     Dosage: 10 MG, 1X/DAY
     Route: 048
     Dates: start: 19980811, end: 19980817
  27. XANEF [ENALAPRIL MALEATE] [Suspect]
     Active Substance: ENALAPRIL MALEATE
     Dosage: 5 MG, 1X/DAY
     Route: 048
  28. NOVALGIN (METAMIZOLE SODIUM) [Suspect]
     Active Substance: METAMIZOLE SODIUM
     Indication: PAIN
     Dosage: 20 GTT, 1X/DAY
     Route: 048
     Dates: start: 19980811, end: 19980811
  29. GLUCOSE [Concomitant]
     Active Substance: DEXTROSE
     Indication: FLUID REPLACEMENT
     Dosage: 500 ML, 1X/DAY
     Route: 042
     Dates: start: 19980824, end: 19980824
  30. ZOCOR [Concomitant]
     Active Substance: SIMVASTATIN
     Indication: HYPERTONIA
     Dosage: 20 MG, 1X/DAY
     Route: 048
     Dates: start: 19980803, end: 19980818
  31. ELECTROLYTES NOS [Concomitant]
     Active Substance: ELECTROLYTES NOS
     Indication: FLUID REPLACEMENT
     Dosage: 1000 ML, 1X/DAY
     Route: 042
     Dates: start: 19980821, end: 19980828
  32. AMINO ACIDS NOS/ELECTROLYTES NOS/VITAMINS NOS [Concomitant]
     Indication: FLUID REPLACEMENT
     Dosage: UNK
     Route: 042
     Dates: start: 19980811, end: 19980817
  33. IRENAT [Concomitant]
     Active Substance: SODIUM PERCHLORATE
     Indication: HYPERTHYROIDISM
     Dosage: 60 GTT, 1X/DAY
     Route: 048
     Dates: end: 19980828
  34. IRENAT [Concomitant]
     Active Substance: SODIUM PERCHLORATE
     Dosage: 20 GTT, 1X/DAY
     Route: 048
  35. INSULIN ZINC SUSPENSION [Concomitant]
     Indication: DIABETES MELLITUS
     Dosage: UNK UNK, 1X/DAY
     Route: 058
  36. DEXTROSE. [Concomitant]
     Active Substance: DEXTROSE
  37. ACETYLSALICYLIC ACID [Suspect]
     Active Substance: ASPIRIN
     Indication: THROMBOSIS PROPHYLAXIS
     Dosage: 100 MG, DAILY
     Route: 048
  38. HEPARIN-CALCIUM [Suspect]
     Active Substance: HEPARIN CALCIUM
     Indication: THROMBOSIS PROPHYLAXIS
     Dosage: 15000.00 IU, 1X/DAY
     Route: 058
     Dates: start: 19980811, end: 19980818
  39. HEPARIN-CALCIUM [Suspect]
     Active Substance: HEPARIN CALCIUM
     Dosage: 7500 IU, 1X/DAY
     Route: 058
     Dates: start: 19980811, end: 19980818
  40. PENICILLIN NOS [Concomitant]
     Active Substance: PENICILLIN
  41. ZIENAM [Concomitant]
     Active Substance: CILASTATIN SODIUM\IMIPENEM
     Dosage: 500 MG, 1X/DAY
     Route: 042
     Dates: start: 19980828
  42. TAGAMET [Concomitant]
     Active Substance: CIMETIDINE
     Indication: PROPHYLAXIS AGAINST GASTROINTESTINAL ULCER
     Dosage: UNK, DAILY, DAILY DOSE = 1 AMPULE
     Route: 042
     Dates: start: 19980826, end: 19980826
  43. CARBIMAZOL [Concomitant]
     Active Substance: CARBIMAZOLE
     Dosage: 10 MG, 1X/DAY, BID
     Route: 048
  44. SOLU-DECORTIN-H [Concomitant]
     Active Substance: PREDNISOLONE SODIUM SUCCINATE
     Dosage: 100 MG (DAILY DOSE)
     Route: 042
     Dates: start: 19980826, end: 19980826
  45. POTASSIUM CITRATE. [Concomitant]
     Active Substance: POTASSIUM CITRATE
     Indication: BLOOD POTASSIUM DECREASED
     Dosage: 1 DF, 1X/DAY
     Route: 048
     Dates: start: 19980821, end: 19980821
  46. EUGLUCON [Suspect]
     Active Substance: GLYBURIDE
     Indication: DIABETES MELLITUS
     Dosage: 1 DF, 1X/DAY
     Route: 048
     Dates: start: 19980820, end: 19980821
  47. XANEF [ENALAPRIL MALEATE] [Suspect]
     Active Substance: ENALAPRIL MALEATE
     Indication: HYPERTENSION
     Dosage: 10 MG, 1X/DAY
     Route: 048
     Dates: start: 19980818
  48. CARVEDILOL. [Suspect]
     Active Substance: CARVEDILOL
     Indication: HYPERTONIA
     Dosage: 6.25 MG, 1X/DAY
     Route: 048
  49. POTASSIUM CHLORIDE. [Concomitant]
     Active Substance: POTASSIUM CHLORIDE
     Indication: BLOOD POTASSIUM DECREASED
     Dosage: 6 MMOL, UNK
     Route: 042
     Dates: start: 19980828, end: 19980828
  50. ERYFER [FERROUS SULFATE] [Concomitant]
     Indication: ANAEMIA
     Dosage: 1 DF, 1X/DAY
     Route: 048
     Dates: end: 19980807
  51. CARBIMAZOL [Concomitant]
     Active Substance: CARBIMAZOLE
     Dosage: 10 MG, 1X/DAY
  52. PARACETAMOL [Concomitant]
     Active Substance: ACETAMINOPHEN
     Indication: ANALGESIC THERAPY
     Dosage: 500 MG, 1X/DAY
     Route: 048
     Dates: start: 19980826
  53. NOVODIGAL [DIGOXIN] [Concomitant]
     Active Substance: DIGOXIN
     Indication: CARDIAC FAILURE
     Dosage: 0.2 MG, 1X/DAY
     Route: 048
     Dates: end: 19980812
  54. SORTIS [Concomitant]
     Active Substance: ATORVASTATIN
     Indication: LIPIDS INCREASED
     Dosage: 10 MG, 1X/DAY
     Route: 048
     Dates: start: 19980826
  55. SOLU-DECORTIN-H [Concomitant]
     Active Substance: PREDNISOLONE SODIUM SUCCINATE
     Indication: ERYTHEMA
     Dosage: 100 MG (DAILY DOSE)
     Route: 048
     Dates: start: 19980826, end: 19980826
  56. DOPMIN [DOPAMINE] [Concomitant]
     Indication: CIRCULATORY COLLAPSE
     Dosage: AS PER BODY WEIGHT
     Route: 042
     Dates: start: 19980808, end: 19980808
  57. FRAGMIN P FORTE [Suspect]
     Active Substance: DALTEPARIN SODIUM
     Indication: THROMBOSIS PROPHYLAXIS
     Dosage: UNK
     Route: 058
     Dates: start: 19980818, end: 19980829
  58. DILATREND [Suspect]
     Active Substance: CARVEDILOL
     Indication: HYPERTENSION
     Dosage: 12.5 MG, 1X/DAY
     Route: 048
     Dates: start: 19980811
  59. PASPERTIN [METOCLOPRAMIDE HYDROCHLORIDE] [Suspect]
     Active Substance: METOCLOPRAMIDE HYDROCHLORIDE
     Dosage: 20 GTT, 1X/DAY
     Route: 048
     Dates: start: 19980814, end: 19980818
  60. PASPERTIN [METOCLOPRAMIDE HYDROCHLORIDE] [Suspect]
     Active Substance: METOCLOPRAMIDE HYDROCHLORIDE
     Dosage: 20 GTT, 1X/DAY
     Route: 048
     Dates: start: 19980821
  61. PASPERTIN [METOCLOPRAMIDE HYDROCHLORIDE] [Suspect]
     Active Substance: METOCLOPRAMIDE HYDROCHLORIDE
     Dosage: 1 TOTAL
     Route: 048
     Dates: start: 19980820, end: 19980820
  62. BEPANTHEN [DEXPANTHENOL] [Concomitant]
     Indication: CIRCULATORY COLLAPSE
     Dosage: 4 DF, DAILY (DAILY DOSE=4 AMPULES)
     Route: 042
     Dates: start: 19980808, end: 19980808
  63. ZIENAM [Concomitant]
     Active Substance: CILASTATIN SODIUM\IMIPENEM
     Indication: SEPSIS
     Dosage: 1500 MG, 1X/DAY
     Route: 042
     Dates: start: 19980828
  64. ANTRA [OMEPRAZOLE] [Concomitant]
     Active Substance: OMEPRAZOLE
     Indication: PROPHYLAXIS AGAINST GASTROINTESTINAL ULCER
     Dosage: 20 MG, 1X/DAY
     Route: 048
     Dates: end: 19980818
  65. TUTOFUSIN [CALCIUM CHLORIDE;MAGNESIUM CHLORIDE;POTASSIUM CHLORIDE;SODI [Concomitant]
     Indication: FLUID REPLACEMENT
     Dosage: 1000 MG, UNK
     Route: 042
     Dates: start: 19980811, end: 19980817
  66. KALINOR [POTASSIUM BICARBONATE;POTASSIUM CITRATE] [Concomitant]
     Dosage: 1 DF, 1 TOTAL
     Route: 048
     Dates: start: 19980824, end: 19980825
  67. KALIUM-DURILES [Concomitant]
     Active Substance: POTASSIUM
     Indication: HYPOKALAEMIA
     Dosage: 2 DF, 1 TOTAL
     Dates: start: 19980814, end: 19980814
  68. LOPIRIN COR [Concomitant]
     Active Substance: CAPTOPRIL
     Indication: HYPERTONIA
     Dosage: 1 DF, 1X/DAY
     Route: 048
  69. UNAT [TORASEMIDE] [Suspect]
     Active Substance: TORSEMIDE
     Indication: CARDIAC FAILURE
     Dosage: 40 MG, 1X/DAY
     Route: 048
     Dates: start: 19980808
  70. CARVEDILOL. [Suspect]
     Active Substance: CARVEDILOL
     Indication: HYPERTENSION
     Dosage: 13 MG, 1X/DAY
     Route: 048
  71. KALIUMKLORID [Concomitant]
     Dosage: 1 DF, 1X/DAY (CAPSULE)
     Route: 048
     Dates: start: 19980818, end: 19980820
  72. AMINOQUINURIDE HYDROCHLORIDE/INSULIN ZINC SUSPENSION [Concomitant]
     Indication: DIABETES MELLITUS
     Dosage: 8 IU, 1X/DAY
     Route: 058
  73. CARBIMAZOL [Concomitant]
     Active Substance: CARBIMAZOLE
     Indication: HYPERTHYROIDISM
     Dosage: 20 MG, 1X/DAY
     Route: 048
  74. CARBIMAZOL [Concomitant]
     Active Substance: CARBIMAZOLE
     Dosage: 10 MG, TID
  75. DEPOT-INSULIN [INSULIN BOVINE] [Concomitant]
     Indication: DIABETES MELLITUS
     Route: 058
  76. ERYFER (ASCORBIC ACID\FERROUS SULFATE\SODIUM BICARBONATE) [Suspect]
     Active Substance: ASCORBIC ACID\FERROUS SULFATE\SODIUM BICARBONATE
     Indication: ANAEMIA
     Dosage: 1 DF, UNK
     Route: 048
     Dates: start: 19980801, end: 19980807
  77. BENZYLPENICILLIN SODIUM [Suspect]
     Active Substance: PENICILLIN G SODIUM
     Indication: PNEUMONIA
     Dosage: 20 MILLION IU, 1X/DAY
     Route: 042
     Dates: start: 19980821, end: 19980826
  78. ISOKET [Suspect]
     Active Substance: ISOSORBIDE DINITRATE
     Indication: HYPERTONIA
  79. KALIUMKLORID [Concomitant]
     Indication: BLOOD POTASSIUM DECREASED
     Dosage: 6 MG, UNK
     Route: 042
     Dates: start: 19980828, end: 19980828
  80. STEROFUNDIN [Concomitant]
     Active Substance: CALCIUM CHLORIDE\MAGNESIUM CHLORIDE\POTASSIUM CHLORIDE\SODIUM ACETATE\SODIUM CHLORIDE
     Dosage: 1000 ML, 1X/DAY (PATIENT RECEIVED 4500 ML APPROX OVER THIS PERIOD)
     Route: 042
     Dates: start: 19980821, end: 19980828

REACTIONS (3)
  - Toxic epidermal necrolysis [Fatal]
  - Circulatory collapse [Fatal]
  - Septic shock [Fatal]

NARRATIVE: CASE EVENT DATE: 19980826
